FAERS Safety Report 6592732-4 (Version None)
Quarter: 2010Q1

REPORT INFORMATION
  Report Type: 
  Country: None (occurrence: None)
  Receive Date: 20100212
  Receipt Date: 20100125
  Transmission Date: 20100710
  Serious: Yes (Other)
  Sender: FDA-Public Use
  Company Number: ES-1180604

PATIENT
  Age: 41 Year
  Sex: Male

DRUGS (2)
  1. CIPRO HC [Suspect]
     Indication: OTITIS MEDIA
     Dosage: AURICULAR (OTIC)
     Route: 001
     Dates: start: 20050101
  2. GENTADEXA (DEXAMYTREX) OPHTHALMIC SOLUTION FOR EAR DROPS, SOLUTION [Suspect]
     Indication: OTITIS MEDIA
     Dosage: AURICULAR (OTIC)
     Route: 001
     Dates: start: 20050101

REACTIONS (5)
  - DEAFNESS [None]
  - LABYRINTHITIS [None]
  - PAIN [None]
  - TINNITUS [None]
  - VERTIGO [None]
